FAERS Safety Report 5890730-7 (Version None)
Quarter: 2008Q3

REPORT INFORMATION
  Report Type: 
  Country: None (occurrence: None)
  Receive Date: 20080922
  Receipt Date: 20080912
  Transmission Date: 20090109
  Serious: Yes (Death, Other)
  Sender: FDA-Public Use
  Company Number: US-BAYER-200826396GPV

PATIENT

DRUGS (9)
  1. CAMPATH [Suspect]
     Indication: BONE MARROW CONDITIONING REGIMEN
     Route: 042
  2. CAMPATH [Suspect]
     Route: 042
  3. METHYLPREDNISOLONE [Suspect]
     Indication: PREMEDICATION
     Route: 065
  4. TACROLIMUS [Suspect]
     Indication: PROPHYLAXIS AGAINST GRAFT VERSUS HOST DISEASE
     Route: 065
  5. STEROIDS [Suspect]
     Indication: TRANSPLANT REJECTION
     Route: 065
  6. SIROLIMUS [Suspect]
     Indication: TRANSPLANT REJECTION
     Route: 065
  7. MYCOPHENOLATE MOFETIL [Suspect]
     Indication: TRANSPLANT REJECTION
     Route: 065
  8. IMMUNE GLOBULIN INTRAVENOUS (HUMAN) [Suspect]
     Indication: TRANSPLANT REJECTION
     Route: 042
  9. THYMOGLOBULIN [Suspect]
     Indication: TRANSPLANT REJECTION

REACTIONS (14)
  - ASPERGILLOSIS [None]
  - BK VIRUS INFECTION [None]
  - BRAIN ABSCESS [None]
  - CRYPTOCOCCOSIS [None]
  - CYTOMEGALOVIRUS INFECTION [None]
  - DEATH [None]
  - DIVERTICULAR PERFORATION [None]
  - INFECTION [None]
  - METASTATIC NEOPLASM [None]
  - MUCORMYCOSIS [None]
  - NECROTISING FASCIITIS [None]
  - NEOPLASM MALIGNANT [None]
  - STAPHYLOCOCCAL INFECTION [None]
  - URINARY TRACT INFECTION [None]
